FAERS Safety Report 7043398-0 (Version None)
Quarter: 2010Q3

REPORT INFORMATION
  Report Type: 
  Country: None (occurrence: None)
  Receive Date: 20100929
  Receipt Date: 20100810
  Transmission Date: 20110219
  Serious: Yes (Hospitalization)
  Sender: FDA-Public Use
  Company Number: US-WYE-H16845410

PATIENT
  Age: 57 Year
  Sex: Female
  Weight: 68.1 kg

DRUGS (5)
  1. PRISTIQ [Suspect]
     Indication: DEPRESSION
     Dosage: 50 MG 1X PER 1 DAY
     Dates: start: 20100101, end: 20100101
  2. LYRICA [Concomitant]
  3. XANAX [Concomitant]
  4. KLONOPIN [Concomitant]
  5. PROTONIX [Concomitant]

REACTIONS (1)
  - DRUG INEFFECTIVE [None]
